FAERS Safety Report 6025160-0 (Version None)
Quarter: 2008Q4

REPORT INFORMATION
  Report Type: 
  Country: None (occurrence: None)
  Receive Date: 20081231
  Receipt Date: 20081231
  Transmission Date: 20090506
  Serious: Yes (Other)
  Sender: FDA-Public Use
  Company Number: US-PFIZER INC-2008091912

PATIENT
  Age: 23 Year
  Sex: Male
  Weight: 68 kg

DRUGS (10)
  1. ATGAM [Suspect]
     Dates: start: 20081023
  2. TUMS [Concomitant]
  3. CLOTRIMAZOLE [Concomitant]
  4. CYCLOSPORINE [Concomitant]
  5. PEPCID [Concomitant]
  6. CELLCEPT [Concomitant]
  7. PRAVACHOL [Concomitant]
  8. SENNA [Concomitant]
  9. BACTRIM DS [Concomitant]
  10. VALCYTE [Concomitant]

REACTIONS (3)
  - CD4 LYMPHOCYTES INCREASED [None]
  - CD8 LYMPHOCYTES INCREASED [None]
  - DRUG INEFFECTIVE [None]
